FAERS Safety Report 25646124 (Version 2)
Quarter: 2025Q4

REPORT INFORMATION
  Report Type: Report from Study
  Country: EU (occurrence: EU)
  Receive Date: 20250805
  Receipt Date: 20251022
  Transmission Date: 20260119
  Serious: Yes (Other)
  Sender: ABBVIE
  Company Number: EU-ABBVIE-6400924

PATIENT
  Sex: Male

DRUGS (4)
  1. CARBIDOPA [Suspect]
     Active Substance: CARBIDOPA
     Indication: Parkinson^s disease
     Dosage: MD: 9.0 ML; KRT: 4.7 ML/H; ED: 4.0 ML
     Route: 050
     Dates: start: 20200218
  2. CARBIDOPA [Suspect]
     Active Substance: CARBIDOPA
  3. CARBIDOPA\LEVODOPA [Concomitant]
     Active Substance: CARBIDOPA\LEVODOPA
     Indication: Product used for unknown indication
     Route: 065
  4. BENSERAZIDE HYDROCHLORIDE\LEVODOPA [Concomitant]
     Active Substance: BENSERAZIDE HYDROCHLORIDE\LEVODOPA
     Indication: Product used for unknown indication
     Route: 065

REACTIONS (6)
  - Cerebrovascular accident [Not Recovered/Not Resolved]
  - Hyperkinesia [Not Recovered/Not Resolved]
  - Musculoskeletal stiffness [Not Recovered/Not Resolved]
  - Dyskinesia [Not Recovered/Not Resolved]
  - Hypokinesia [Not Recovered/Not Resolved]
  - On and off phenomenon [Unknown]
